FAERS Safety Report 24139885 (Version 1)
Quarter: 2024Q3

REPORT INFORMATION
  Report Type: Other
  Country: FR (occurrence: FR)
  Receive Date: 20240726
  Receipt Date: 20240726
  Transmission Date: 20241017
  Serious: Yes (Hospitalization)
  Sender: BIOCON
  Company Number: None

PATIENT

DRUGS (4)
  1. TRASTUZUMAB [Suspect]
     Active Substance: TRASTUZUMAB
     Indication: Breast cancer
     Dosage: 6 MILLIGRAM/KILOGRAM, 1 TOTAL
     Route: 042
     Dates: start: 20240606, end: 20240606
  2. TRASTUZUMAB [Suspect]
     Active Substance: TRASTUZUMAB
     Dosage: 8 MILLIGRAM/KILOGRAM, 1 TOTAL
     Route: 042
     Dates: start: 20240515, end: 20240515
  3. PACLITAXEL [Suspect]
     Active Substance: PACLITAXEL
     Indication: Breast cancer
     Dosage: 80 MILLIGRAM/SQ. METER, 7 DAYS CYCLICAL, CYCLE 2 : J1-J8
     Route: 042
     Dates: start: 20240606, end: 20240613
  4. PACLITAXEL [Suspect]
     Active Substance: PACLITAXEL
     Dosage: 80 MILLIGRAM/SQ. METER, CYCLICAL, CYCLE 1 : J1-J8-J15
     Route: 042
     Dates: start: 20240515, end: 20240529

REACTIONS (2)
  - Gastrointestinal disorder [Not Recovered/Not Resolved]
  - Blood electrolytes decreased [Not Recovered/Not Resolved]

NARRATIVE: CASE EVENT DATE: 20240601
